FAERS Safety Report 19761616 (Version 2)
Quarter: 2021Q3

REPORT INFORMATION
  Report Type: Spontaneous
  Country: JP (occurrence: JP)
  Receive Date: 20210827
  Receipt Date: 20210928
  Transmission Date: 20211014
  Serious: Yes (Hospitalization, Other)
  Sender: FDA-Public Use
  Company Number: JP-GILEAD-2021-0545716

PATIENT
  Age: 70 Year
  Sex: Male

DRUGS (2)
  1. VEKLURY [Suspect]
     Active Substance: REMDESIVIR
     Indication: COVID-19 PNEUMONIA
     Dosage: UNK
     Route: 065
     Dates: start: 20210216, end: 20210223
  2. DEXAMETHASONE. [Concomitant]
     Active Substance: DEXAMETHASONE
     Indication: COVID-19 PNEUMONIA

REACTIONS (5)
  - Shock haemorrhagic [Unknown]
  - Diverticulum intestinal [Unknown]
  - Renal impairment [Unknown]
  - Diverticulum intestinal haemorrhagic [Unknown]
  - Respiratory failure [Unknown]
